FAERS Safety Report 14280083 (Version 1)
Quarter: 2017Q4

REPORT INFORMATION
  Report Type: Spontaneous
  Country: DE (occurrence: DE)
  Receive Date: 20171213
  Receipt Date: 20171213
  Transmission Date: 20180321
  Serious: Yes (Hospitalization, Other)
  Sender: FDA-Public Use
  Company Number: DE-ABBVIE-17K-062-2187922-00

PATIENT
  Age: 53 Year
  Sex: Female

DRUGS (9)
  1. SIMPONI [Suspect]
     Active Substance: GOLIMUMAB
     Indication: PRODUCT USED FOR UNKNOWN INDICATION
     Route: 065
     Dates: start: 201511, end: 201704
  2. PLAQUENIL [Suspect]
     Active Substance: HYDROXYCHLOROQUINE SULFATE
     Indication: PRODUCT USED FOR UNKNOWN INDICATION
     Route: 065
     Dates: start: 201411, end: 2016
  3. SPIRICORT [Concomitant]
     Active Substance: PREDNISOLONE
     Indication: PRODUCT USED FOR UNKNOWN INDICATION
  4. XELJANZ [Suspect]
     Active Substance: TOFACITINIB CITRATE
     Route: 065
     Dates: start: 2017
  5. PANTOPRAZOL [Concomitant]
     Active Substance: PANTOPRAZOLE SODIUM
     Indication: PRODUCT USED FOR UNKNOWN INDICATION
  6. HUMIRA [Suspect]
     Active Substance: ADALIMUMAB
     Indication: RHEUMATOID ARTHRITIS
     Route: 058
     Dates: start: 2005, end: 2008
  7. XELJANZ [Suspect]
     Active Substance: TOFACITINIB CITRATE
     Indication: RHEUMATOID ARTHRITIS
     Route: 065
     Dates: start: 201703, end: 201706
  8. LODOTRA [Concomitant]
     Active Substance: PREDNISONE
     Indication: PRODUCT USED FOR UNKNOWN INDICATION
     Dosage: 1MG/DL
  9. BUSCOPAN [Concomitant]
     Active Substance: BUTYLSCOPOLAMINE BROMIDE
     Indication: PRODUCT USED FOR UNKNOWN INDICATION

REACTIONS (30)
  - Gastrointestinal disorder [Unknown]
  - Sleep apnoea syndrome [Unknown]
  - Acute kidney injury [Recovering/Resolving]
  - Chills [Unknown]
  - Nausea [Unknown]
  - Supraventricular tachycardia [Unknown]
  - Constipation [Unknown]
  - Lacrimation increased [Unknown]
  - Blood creatinine increased [Unknown]
  - Abdominal distension [Unknown]
  - Drug specific antibody [Unknown]
  - Decreased appetite [Unknown]
  - Drug effect decreased [Unknown]
  - Sinusitis [Unknown]
  - Hypercalcaemia [Unknown]
  - Infection [Unknown]
  - Proteinuria [Unknown]
  - Spinal pain [Unknown]
  - Glucose tolerance impaired [Unknown]
  - Tendonitis [Unknown]
  - Drug ineffective [Unknown]
  - Abdominal pain upper [Unknown]
  - Abdominal pain [Recovering/Resolving]
  - Acute kidney injury [Unknown]
  - Sjogren^s syndrome [Unknown]
  - Peripheral venous disease [Unknown]
  - Malaise [Unknown]
  - Interstitial lung disease [Unknown]
  - Pyrexia [Recovering/Resolving]
  - Liver disorder [Unknown]

NARRATIVE: CASE EVENT DATE: 2008
